FAERS Safety Report 8484562-3 (Version None)
Quarter: 2012Q3

REPORT INFORMATION
  Report Type: 
  Country: None (occurrence: None)
  Receive Date: 20120703
  Receipt Date: 20120626
  Transmission Date: 20120928
  Serious: Yes (Other)
  Sender: FDA-Public Use
  Company Number: GB-PFIZER INC-2012153360

PATIENT
  Age: 50 Year
  Sex: Male
  Weight: 101 kg

DRUGS (9)
  1. LITHIUM CARBONATE [Suspect]
     Dosage: 1000 MG, 1X/DAY
  2. PROPRANOLOL [Concomitant]
     Dosage: 40 MG, 4X/DAY
  3. OMACOR [Concomitant]
     Dosage: 2 DF, 1X/DAY
  4. DIAZEPAM [Concomitant]
     Dosage: 5 MG, UNK
  5. BISMUTH SUBSALICYLATE IN OIL INJ [Concomitant]
     Dosage: 262.5 MG, UNK
  6. VENLAFAXINE HCL [Suspect]
     Dosage: 75 MG, 2X/DAY
  7. TRAMADOL HCL [Concomitant]
     Dosage: 50-100MG, 3 TO 4 TIMES PER DAY
  8. ACETAMINOPHEN [Concomitant]
     Dosage: 1000 MG, UNK
  9. ARIPIPRAZOLE [Concomitant]
     Dosage: 10 MG, 3X/DAY

REACTIONS (1)
  - BLOOD GLUCOSE FLUCTUATION [None]
